FAERS Safety Report 24559286 (Version 1)
Quarter: 2024Q4

REPORT INFORMATION
  Report Type: Report from Study
  Country: US (occurrence: US)
  Receive Date: 20241029
  Receipt Date: 20241029
  Transmission Date: 20250115
  Serious: Yes (Hospitalization)
  Sender: TAKEDA
  Company Number: US-TAKEDA-2023TUS078997

PATIENT
  Sex: Male

DRUGS (6)
  1. LANADELUMAB [Suspect]
     Active Substance: LANADELUMAB
     Indication: Immune system disorder
     Dosage: 150 MILLIGRAM, Q4WEEKS
     Route: 058
     Dates: start: 202305
  2. LANADELUMAB [Suspect]
     Active Substance: LANADELUMAB
     Indication: Immune system disorder
     Dosage: 150 MILLIGRAM, Q4WEEKS
     Route: 058
     Dates: start: 202305
  3. LANADELUMAB [Suspect]
     Active Substance: LANADELUMAB
     Indication: Immune system disorder
     Dosage: 150 MILLIGRAM, Q4WEEKS
     Route: 058
     Dates: start: 202305
  4. LANADELUMAB [Suspect]
     Active Substance: LANADELUMAB
     Dosage: 150 MILLIGRAM, Q4WEEKS
     Route: 058
     Dates: start: 202308
  5. LANADELUMAB [Suspect]
     Active Substance: LANADELUMAB
     Dosage: 150 MILLIGRAM, Q4WEEKS
     Route: 058
     Dates: start: 202308
  6. LANADELUMAB [Suspect]
     Active Substance: LANADELUMAB
     Dosage: 150 MILLIGRAM, Q4WEEKS
     Route: 058
     Dates: start: 202308

REACTIONS (3)
  - Tonsillar disorder [Unknown]
  - Tooth disorder [Unknown]
  - Weight decreased [Unknown]
